FAERS Safety Report 13023182 (Version 2)
Quarter: 2016Q4

REPORT INFORMATION
  Report Type: Report from Study
  Country: BE (occurrence: BE)
  Receive Date: 20161213
  Receipt Date: 20161216
  Transmission Date: 20170207
  Serious: Yes (Hospitalization)
  Sender: FDA-Public Use
  Company Number: BE-SA-2016SA182662

PATIENT
  Age: 3 Year
  Sex: Male

DRUGS (24)
  1. BUSULFAN. [Concomitant]
     Active Substance: BUSULFAN
     Route: 042
     Dates: start: 20160911, end: 20160914
  2. FLUDARABINE [Concomitant]
     Active Substance: FLUDARABINE PHOSPHATE
     Dosage: 26.6 (UNIT: UNSPECIFIED)
     Route: 042
     Dates: start: 20160911, end: 20160914
  3. ACICLOVIR [Concomitant]
     Active Substance: ACYCLOVIR
     Indication: PROPHYLAXIS
     Route: 042
     Dates: start: 20160907
  4. ESOMEPRAZOLE [Concomitant]
     Active Substance: ESOMEPRAZOLE
     Route: 042
     Dates: start: 20160907
  5. SANDIMMUNE [Concomitant]
     Active Substance: CYCLOSPORINE
     Indication: PROPHYLAXIS
     Route: 042
     Dates: start: 20160922
  6. VALCYTE [Concomitant]
     Active Substance: VALGANCICLOVIR HYDROCHLORIDE
     Indication: PROPHYLAXIS
     Dosage: POWDER
     Route: 048
     Dates: start: 20161011, end: 20161114
  7. MAGNESIUM CITRATE. [Concomitant]
     Active Substance: MAGNESIUM CITRATE
     Route: 048
     Dates: start: 20161003, end: 20161121
  8. OMEPRAZOLE. [Concomitant]
     Active Substance: OMEPRAZOLE
     Route: 048
     Dates: start: 20160929
  9. COLECALCIFEROL [Concomitant]
     Active Substance: CHOLECALCIFEROL
     Dosage: DAILY DOS: 400IE
     Route: 048
     Dates: start: 20161105
  10. CEFTAZIDIME. [Concomitant]
     Active Substance: CEFTAZIDIME
     Route: 042
     Dates: start: 20160916, end: 20160925
  11. BETAMETHASONE. [Concomitant]
     Active Substance: BETAMETHASONE
     Route: 003
     Dates: start: 20161105
  12. NEORAL [Concomitant]
     Active Substance: CYCLOSPORINE
     Indication: PROPHYLAXIS
     Route: 048
     Dates: start: 20161018
  13. PREDNISOLONE. [Suspect]
     Active Substance: PREDNISOLONE
     Dosage: DAILY DOSE: 17
     Route: 065
     Dates: start: 20160908, end: 20160911
  14. GRANISETRON [Concomitant]
     Active Substance: GRANISETRON
     Route: 042
     Dates: start: 20160914
  15. AMBISOME [Concomitant]
     Active Substance: AMPHOTERICIN B
     Dosage: 40 MG 2 X P.W.
     Route: 042
     Dates: start: 20160912
  16. COTRIMOXAZOLE [Concomitant]
     Active Substance: SULFAMETHOXAZOLE\TRIMETHOPRIM
     Indication: PROPHYLAXIS
     Dosage: DOSE: 3 PW 480 MG
     Route: 048
     Dates: start: 20161014, end: 20161125
  17. MORFINE [Concomitant]
     Active Substance: MORPHINE
     Route: 042
     Dates: start: 20160922
  18. PARACETAMOL [Concomitant]
     Active Substance: ACETAMINOPHEN
     Route: 042
     Dates: start: 20160920, end: 20160926
  19. THYMOGLOBULINE [Suspect]
     Active Substance: LAPINE T-LYMPHOCYTE IMMUNE GLOBULIN
     Indication: BONE MARROW CONDITIONING REGIMEN
     Dosage: DAILY DOSE: 29.23 UNITS NOT SPECIFIED
     Route: 065
     Dates: start: 20160907, end: 20160910
  20. CEFAZOLINE [Concomitant]
     Active Substance: CEFAZOLIN SODIUM
     Indication: PROPHYLAXIS
     Route: 042
     Dates: start: 20160920, end: 20160925
  21. FILGRASTIM [Concomitant]
     Active Substance: FILGRASTIM
     Route: 042
     Dates: start: 20160923
  22. PREDNISOLONE. [Suspect]
     Active Substance: PREDNISOLONE
     Route: 065
     Dates: start: 20160917
  23. GRANISETRON [Concomitant]
     Active Substance: GRANISETRON
     Route: 048
     Dates: start: 20161003
  24. COLECALCIFEROL [Concomitant]
     Active Substance: CHOLECALCIFEROL
     Dosage: DOSE: 400IE
     Route: 048
     Dates: start: 20160912

REACTIONS (4)
  - Upper gastrointestinal haemorrhage [Recovered/Resolved]
  - Bacteraemia [Recovered/Resolved]
  - Gastrointestinal disorder [Recovered/Resolved]
  - Lower gastrointestinal haemorrhage [Recovered/Resolved]

NARRATIVE: CASE EVENT DATE: 20160924
